FAERS Safety Report 9825897 (Version 1)
Quarter: 2013Q4

REPORT INFORMATION
  Report Type: Spontaneous
  Country: US (occurrence: None)
  Receive Date: 20131028
  Receipt Date: 20131028
  Transmission Date: 20140711
  Serious: Yes (Hospitalization)
  Sender: FDA-Public Use
  Company Number: 2013US001986

PATIENT
  Age: 70 Year
  Sex: Female
  Weight: 100 kg

DRUGS (8)
  1. ICLUSIG [Suspect]
     Indication: CHRONIC MYELOID LEUKAEMIA
     Dates: end: 20130704
  2. VITAMIN D (VITAMIN D) [Concomitant]
  3. LASIX (FUROSEMIDE) [Concomitant]
  4. AMARYL (GLIMEPIRIDE) [Concomitant]
  5. FISH OIL (FISH OIL) [Concomitant]
  6. GLUCOSAMINE AND CHONDROITON (CHONDROITIN SULFATE SODIUM, GLUCOSAMINE [Concomitant]
  7. COREG (CARVEDILOL) [Concomitant]
  8. ASPIRIN (ASPIRIN) [Concomitant]

REACTIONS (1)
  - Infection [None]
